FAERS Safety Report 9628549 (Version 3)
Quarter: 2013Q4

REPORT INFORMATION
  Report Type: Report from Study
  Country: AR (occurrence: AR)
  Receive Date: 20131017
  Receipt Date: 20131107
  Transmission Date: 20140711
  Serious: Yes (Hospitalization)
  Sender: FDA-Public Use
  Company Number: PHHO2013AR013456

PATIENT
  Sex: 0

DRUGS (5)
  1. ACZ885 [Suspect]
     Indication: JUVENILE IDIOPATHIC ARTHRITIS
     Dosage: 170 MG, Q8 WEEKS
     Route: 058
     Dates: start: 20100924, end: 20130917
  2. METHYLPREDNISOLONE [Suspect]
     Indication: JUVENILE IDIOPATHIC ARTHRITIS
     Dosage: 16 MG, BID
     Route: 048
     Dates: start: 20081215
  3. METHOTREXATE [Suspect]
     Indication: JUVENILE IDIOPATHIC ARTHRITIS
     Dosage: 20 MG, QD
     Route: 048
     Dates: start: 20090311, end: 20131011
  4. INDOMETHACIN [Concomitant]
     Indication: JUVENILE IDIOPATHIC ARTHRITIS
     Dosage: 75 MG, QD
     Route: 048
     Dates: start: 20081115
  5. CLINDAMYCIN [Suspect]
     Dosage: 420 UG, TID
     Route: 042
     Dates: start: 20131015, end: 20131023

REACTIONS (2)
  - Subcutaneous abscess [Recovered/Resolved with Sequelae]
  - Toxic skin eruption [Recovering/Resolving]
